FAERS Safety Report 5758982-1 (Version None)
Quarter: 2008Q2

REPORT INFORMATION
  Report Type: 
  Country: None (occurrence: None)
  Receive Date: 20080530
  Receipt Date: 20080515
  Transmission Date: 20081010
  Serious: Yes (Hospitalization)
  Sender: FDA-Public Use
  Company Number: 028238

PATIENT
  Age: 13 Year
  Sex: Male

DRUGS (2)
  1. CLARAVIS [Suspect]
     Dosage: 50 MG/DAY, ORAL; 30 MG/DAY,
     Route: 048
  2. CLARAVIS [Suspect]
     Dosage: 50 MG/DAY, ORAL; 30 MG/DAY,
     Route: 048

REACTIONS (7)
  - DYSPNOEA [None]
  - EPISTAXIS [None]
  - GUILLAIN-BARRE SYNDROME [None]
  - HEADACHE [None]
  - LETHARGY [None]
  - PARALYSIS FLACCID [None]
  - QUADRIPARESIS [None]
